FAERS Safety Report 4991194-8 (Version None)
Quarter: 2006Q2

REPORT INFORMATION
  Report Type: 
  Country: None (occurrence: None)
  Receive Date: 20060427
  Receipt Date: 20060425
  Transmission Date: 20061013
  Serious: Yes (Hospitalization, Other)
  Sender: FDA-Public Use
  Company Number: HQWYE495623MAR06

PATIENT
  Age: 16 Year
  Sex: Female

DRUGS (1)
  1. ADVIL [Suspect]
     Dosage: 90 TABLETS PER 400 MG (36 G = 514 MG/KG OF BODY WEIGHT) ORAL
     Route: 048

REACTIONS (12)
  - DRUG TOXICITY [None]
  - GASTROINTESTINAL DISORDER [None]
  - HEPATOTOXICITY [None]
  - INTENTIONAL OVERDOSE [None]
  - LOSS OF CONSCIOUSNESS [None]
  - METABOLIC ACIDOSIS [None]
  - MIOSIS [None]
  - NEPHROPATHY TOXIC [None]
  - NEUROLOGICAL SYMPTOM [None]
  - RESTLESSNESS [None]
  - SUICIDE ATTEMPT [None]
  - VOMITING [None]
